FAERS Safety Report 9407155 (Version 5)
Quarter: 2013Q3

REPORT INFORMATION
  Report Type: Spontaneous
  Country: US (occurrence: US)
  Receive Date: 20130718
  Receipt Date: 20130820
  Transmission Date: 20140515
  Serious: Yes (Life-Threatening, Hospitalization)
  Sender: FDA-Public Use
  Company Number: US-JNJFOC-20130709768

PATIENT
  Age: 84 Year
  Sex: Male

DRUGS (11)
  1. XARELTO [Suspect]
     Indication: CEREBROVASCULAR ACCIDENT PROPHYLAXIS
     Dosage: AT 7 PM
     Route: 048
     Dates: end: 20130714
  2. XARELTO [Suspect]
     Indication: ATRIAL FIBRILLATION
     Dosage: AT 7 PM
     Route: 048
     Dates: end: 20130714
  3. ASPIRIN [Suspect]
     Indication: ATRIAL FIBRILLATION
     Route: 048
  4. NOVOLIN NOS [Concomitant]
     Indication: DIABETES MELLITUS
     Route: 048
  5. LEXAPRO [Concomitant]
     Indication: PRODUCT USED FOR UNKNOWN INDICATION
     Route: 048
  6. SEROQUEL [Concomitant]
     Indication: DEMENTIA
     Route: 048
  7. LASIX [Concomitant]
     Indication: HYPERTENSION
     Route: 048
  8. KCL [Concomitant]
     Indication: PRODUCT USED FOR UNKNOWN INDICATION
     Route: 048
  9. XANAX [Concomitant]
     Indication: AGITATION
     Route: 048
  10. METOPROLOL [Concomitant]
     Indication: HYPERTENSION
     Route: 048
  11. BACTRIM [Concomitant]
     Indication: URINARY TRACT INFECTION
     Route: 048

REACTIONS (3)
  - Haemarthrosis [Recovering/Resolving]
  - Fall [Unknown]
  - Drug prescribing error [Unknown]
